FAERS Safety Report 4875336-0 (Version None)
Quarter: 2006Q1

REPORT INFORMATION
  Report Type: 
  Country: None (occurrence: None)
  Receive Date: 20060109
  Receipt Date: 20051005
  Transmission Date: 20060701
  Serious: Yes (Hospitalization)
  Sender: FDA-Public Use
  Company Number: US-MERCK-0510USA04595

PATIENT
  Age: 46 Year
  Sex: Male
  Weight: 127 kg

DRUGS (3)
  1. VIOXX [Suspect]
     Indication: OEDEMA PERIPHERAL
     Route: 048
     Dates: start: 20030801, end: 20030903
  2. GLUCOPHAGE [Concomitant]
     Route: 065
  3. [THERAPY UNSPECIFIED] [Concomitant]
     Route: 065

REACTIONS (27)
  - ANGINA UNSTABLE [None]
  - ARRHYTHMIA [None]
  - ARTERIOSCLEROSIS CORONARY ARTERY [None]
  - ATELECTASIS [None]
  - CARDIAC FAILURE CONGESTIVE [None]
  - CARDIOMEGALY [None]
  - CARDIOVASCULAR DISORDER [None]
  - CONGESTIVE CARDIOMYOPATHY [None]
  - CORONARY ARTERY DISEASE [None]
  - CORONARY ARTERY OCCLUSION [None]
  - DEPRESSION [None]
  - DIZZINESS [None]
  - DRUG HYPERSENSITIVITY [None]
  - DYSPNOEA EXACERBATED [None]
  - FALL [None]
  - HAEMATOCRIT INCREASED [None]
  - HYPERTENSIVE HEART DISEASE [None]
  - ISCHAEMIA [None]
  - LUNG DISORDER [None]
  - LUNG NEOPLASM [None]
  - MYOCARDIAL INFARCTION [None]
  - MYOCARDIAL ISCHAEMIA [None]
  - PLEURAL EFFUSION [None]
  - RENAL FAILURE CHRONIC [None]
  - SLEEP APNOEA SYNDROME [None]
  - TEMPOROMANDIBULAR JOINT SYNDROME [None]
  - TRANSIENT ISCHAEMIC ATTACK [None]
